FAERS Safety Report 23150736 (Version 2)
Quarter: 2023Q4

REPORT INFORMATION
  Report Type: Spontaneous
  Country: US (occurrence: US)
  Receive Date: 20231106
  Receipt Date: 20231219
  Transmission Date: 20240110
  Serious: No
  Sender: FDA-Public Use
  Company Number: US-BRISTOL-MYERS SQUIBB COMPANY-2023-158529

PATIENT
  Age: 90 Year
  Sex: Male

DRUGS (1)
  1. LENALIDOMIDE [Suspect]
     Active Substance: LENALIDOMIDE
     Indication: Nephrogenic anaemia
     Route: 048
     Dates: start: 20231019

REACTIONS (3)
  - Inflammation [Recovering/Resolving]
  - Pruritus [Recovering/Resolving]
  - Off label use [Unknown]
